FAERS Safety Report 6370923-5 (Version None)
Quarter: 2009Q3

REPORT INFORMATION
  Report Type: 
  Country: None (occurrence: None)
  Receive Date: 20090923
  Receipt Date: 20071213
  Transmission Date: 20100115
  Serious: No
  Sender: FDA-Public Use
  Company Number: US-ASTRAZENECA-2006UW22977

PATIENT
  Age: 11918 Day
  Sex: Female
  Weight: 74.4 kg

DRUGS (19)
  1. SEROQUEL [Suspect]
     Indication: BIPOLAR DISORDER
     Dosage: 100 MG - 600 MG
     Route: 048
     Dates: start: 20030804
  2. SEROQUEL [Suspect]
     Indication: ANXIETY
     Dosage: 100 MG - 600 MG
     Route: 048
     Dates: start: 20030804
  3. SEROQUEL [Suspect]
     Indication: DEPRESSION
     Dosage: 100 MG - 600 MG
     Route: 048
     Dates: start: 20030804
  4. SEROQUEL [Suspect]
     Indication: SCHIZOPHRENIA
     Dosage: 100 MG - 600 MG
     Route: 048
     Dates: start: 20030804
  5. SEROQUEL [Suspect]
     Route: 048
     Dates: start: 20040101
  6. SEROQUEL [Suspect]
     Route: 048
     Dates: start: 20040101
  7. SEROQUEL [Suspect]
     Route: 048
     Dates: start: 20040101
  8. SEROQUEL [Suspect]
     Route: 048
     Dates: start: 20040101
  9. ABILIFY [Concomitant]
     Route: 065
  10. CLONAZEPAM [Concomitant]
     Route: 065
  11. LORAZEPAM [Concomitant]
     Route: 065
  12. TOPAMAX [Concomitant]
     Route: 065
  13. AMOXICILLIN [Concomitant]
     Route: 065
  14. COMPAZINE [Concomitant]
     Route: 065
  15. ZYPREXA [Concomitant]
     Route: 065
  16. HYDROCODONE [Concomitant]
     Route: 065
  17. SINGULAIR [Concomitant]
     Route: 065
  18. AMBIEN [Concomitant]
     Route: 065
  19. TEMAZEPAM [Concomitant]
     Route: 065

REACTIONS (13)
  - ABDOMINAL PAIN LOWER [None]
  - ABSCESS ORAL [None]
  - ANXIETY [None]
  - ARTHRALGIA [None]
  - BACK PAIN [None]
  - BIPOLAR DISORDER [None]
  - BRONCHITIS [None]
  - DIABETES MELLITUS [None]
  - GASTROOESOPHAGEAL REFLUX DISEASE [None]
  - PAIN IN EXTREMITY [None]
  - POOR QUALITY SLEEP [None]
  - PSYCHOMOTOR HYPERACTIVITY [None]
  - SINUSITIS [None]
